FAERS Safety Report 8592465-9 (Version None)
Quarter: 2012Q3

REPORT INFORMATION
  Report Type: 
  Country: None (occurrence: None)
  Receive Date: 20120814
  Receipt Date: 20120806
  Transmission Date: 20120928
  Serious: Yes (Other)
  Sender: FDA-Public Use
  Company Number: TR-PFIZER INC-2012185823

PATIENT
  Age: 53 Year
  Sex: Female

DRUGS (3)
  1. SULFASALAZINE [Suspect]
     Indication: ANKYLOSING SPONDYLITIS
     Dosage: UNK
  2. ETANERCEPT [Suspect]
     Indication: ANKYLOSING SPONDYLITIS
     Dosage: 25 MG WAS STARTED AT 2 INJECTIONS PER WEEK
     Dates: start: 20070401
  3. SULFASALAZINE [Suspect]
     Dosage: UNK
     Dates: start: 20100401

REACTIONS (2)
  - CERVIX CARCINOMA [None]
  - DRUG INEFFECTIVE [None]
